FAERS Safety Report 18221320 (Version 1)
Quarter: 2020Q3

REPORT INFORMATION
  Report Type: Spontaneous
  Country: GB (occurrence: GB)
  Receive Date: 20200902
  Receipt Date: 20200902
  Transmission Date: 20201103
  Serious: Yes (Other)
  Sender: FDA-Public Use
  Company Number: GB-TORRENT-00024017

PATIENT
  Age: 28 Year
  Sex: Female
  Weight: 59 kg

DRUGS (7)
  1. ERYTHROMYCIN. [Concomitant]
     Active Substance: ERYTHROMYCIN
     Indication: PRODUCT USED FOR UNKNOWN INDICATION
     Dates: start: 20200507
  2. QUETIAPINE. [Suspect]
     Active Substance: QUETIAPINE
     Indication: PRODUCT USED FOR UNKNOWN INDICATION
  3. RELVAR ELLIPTA [Concomitant]
     Active Substance: FLUTICASONE FUROATE\VILANTEROL TRIFENATATE
     Indication: PRODUCT USED FOR UNKNOWN INDICATION
     Dosage: 184MICROGRAMS/DOSE/22MICROGRAMS/DOSE
     Route: 055
     Dates: start: 20200507
  4. MIRTAZAPINE. [Concomitant]
     Active Substance: MIRTAZAPINE
     Indication: PRODUCT USED FOR UNKNOWN INDICATION
     Dosage: AT NIGHT.
     Dates: start: 20200617
  5. VENTOLIN [Concomitant]
     Active Substance: ALBUTEROL SULFATE
     Indication: PRODUCT USED FOR UNKNOWN INDICATION
     Dosage: 100MICROGRAMS/DOSE 1 TO 2 PUFFS UP TO FOUR, TIMES DAILY. AS NECESSARY
     Dates: start: 20200507
  6. VENLAFAXINE [Concomitant]
     Active Substance: VENLAFAXINE HYDROCHLORIDE
     Indication: PRODUCT USED FOR UNKNOWN INDICATION
     Dates: start: 20200507, end: 20200528
  7. CO?CYPRINDIOL [Concomitant]
     Active Substance: CYPROTERONE ACETATE\ETHINYL ESTRADIOL
     Indication: PRODUCT USED FOR UNKNOWN INDICATION
     Dosage: 2000MICROGRAM/35MICROGRAM 1 TABLET ONCE A DAY FOR 21 DAYS FOLLOWED BY 7 TABLET FREE DAYS
     Dates: start: 20200507

REACTIONS (3)
  - Dizziness [Recovering/Resolving]
  - Suicidal ideation [Unknown]
  - Nausea [Unknown]

NARRATIVE: CASE EVENT DATE: 20200116
